FAERS Safety Report 5683576-6 (Version None)
Quarter: 2008Q2

REPORT INFORMATION
  Report Type: 
  Country: None (occurrence: None)
  Receive Date: 20080319
  Receipt Date: 20071203
  Transmission Date: 20081010
  Serious: Yes (Hospitalization, Other)
  Sender: FDA-Public Use
  Company Number: US-WYE-H01570907

PATIENT
  Age: 45 Year
  Sex: Female
  Weight: 124.85 kg

DRUGS (5)
  1. LYBREL [Suspect]
     Indication: MENORRHAGIA
     Dosage: 1 TABLET 1X PER 1 DAY, ORAL
     Route: 048
     Dates: start: 20070918, end: 20071125
  2. ALBUTEROL [Concomitant]
  3. LEXAPRO [Concomitant]
  4. SINGULAIR [Concomitant]
  5. LOESTRIN 1.5/30 [Concomitant]

REACTIONS (2)
  - DEEP VEIN THROMBOSIS [None]
  - PULMONARY EMBOLISM [None]
